FAERS Safety Report 7827715-7 (Version None)
Quarter: 2011Q4

REPORT INFORMATION
  Report Type: 
  Country: None (occurrence: None)
  Receive Date: 20111020
  Receipt Date: 20111017
  Transmission Date: 20120403
  Serious: Yes (Other)
  Sender: FDA-Public Use
  Company Number: US-PFIZER INC-2011249607

PATIENT
  Age: 66 Year
  Sex: Female

DRUGS (2)
  1. ROZEREM [Concomitant]
     Indication: INSOMNIA
     Dosage: UNK
     Route: 048
  2. PRISTIQ [Suspect]
     Indication: DEPRESSION
     Dosage: 100 MG, UNK
     Route: 048
     Dates: start: 20100101, end: 20110101

REACTIONS (1)
  - GASTRIC BANDING [None]
